FAERS Safety Report 23486921 (Version 1)
Quarter: 2024Q1

REPORT INFORMATION
  Report Type: Spontaneous
  Country: US (occurrence: None)
  Receive Date: 20240205
  Receipt Date: 20240205
  Transmission Date: 20240409
  Serious: Yes (Death)
  Sender: FDA-Public Use
  Company Number: None

PATIENT
  Age: 87 Year
  Sex: Female
  Weight: 92.5 kg

DRUGS (13)
  1. COLLAGENASE SANTYL [Suspect]
     Active Substance: COLLAGENASE CLOSTRIDIUM HISTOLYTICUM
     Indication: Product used for unknown indication
     Dosage: 250U/GM DAILY
     Dates: start: 20231011
  2. RETACRIT [Suspect]
     Active Substance: EPOETIN ALFA-EPBX
     Dosage: 1ML INJECT 1 ML SC Q14 DAYS SUBCUTANEOUS?
     Route: 058
     Dates: start: 20220816
  3. ASPIRIN [Concomitant]
  4. ALLOPURINOL [Concomitant]
  5. FUROSEMIDE [Concomitant]
  6. GLIPIZIDE ER [Concomitant]
     Active Substance: GLIPIZIDE
  7. HUMALOG [Concomitant]
     Active Substance: INSULIN LISPRO
  8. METOPROLOL TARTRATE [Concomitant]
     Active Substance: METOPROLOL TARTRATE
  9. MULTIVITAMIN WOMEN 50+ [Concomitant]
  10. NOVOLIN INSULIN 70/30 HUMAN [Concomitant]
  11. TRAMADOL [Concomitant]
  12. VITAMIN C [Concomitant]
     Active Substance: ASCORBIC ACID
  13. ZEMPLAR [Concomitant]

REACTIONS (1)
  - Death [None]

NARRATIVE: CASE EVENT DATE: 20240205
